FAERS Safety Report 9461434 (Version 1)
Quarter: 2013Q3

REPORT INFORMATION
  Report Type: Report from Study
  Country: JP (occurrence: JP)
  Receive Date: 20130816
  Receipt Date: 20130816
  Transmission Date: 20140515
  Serious: Yes (Hospitalization, Other)
  Sender: FDA-Public Use
  Company Number: PHHY2012JP093476

PATIENT
  Age: 69 Year
  Sex: Male
  Weight: 64 kg

DRUGS (10)
  1. AFINITOR [Suspect]
     Indication: METASTATIC RENAL CELL CARCINOMA
     Dosage: 10 MG, DAILY
     Route: 048
     Dates: start: 20110405, end: 20110415
  2. AFINITOR [Suspect]
     Dosage: 10 MG, DAILY
     Route: 048
     Dates: start: 20110513, end: 20110702
  3. TEGRETOL [Concomitant]
     Indication: METASTATIC RENAL CELL CARCINOMA
     Dosage: 400 MG, DAILY
     Route: 048
     Dates: start: 20110425, end: 20110425
  4. TEGRETOL [Concomitant]
     Dosage: 0.4 G
     Route: 048
     Dates: start: 20110426
  5. TEGRETOL [Concomitant]
     Dosage: 0.36 G
     Route: 048
     Dates: start: 20110426
  6. ALOSITOL [Concomitant]
     Indication: PROPHYLAXIS
     Dosage: 100 MG
     Route: 048
     Dates: start: 20110418, end: 20110425
  7. ARGAMATE [Concomitant]
     Dosage: 25 G
     Route: 048
     Dates: start: 20110418, end: 20110512
  8. FAMOSTAGINE-D [Concomitant]
     Indication: PROPHYLAXIS
     Dosage: 20 MG
     Route: 048
     Dates: start: 20110426
  9. FAMOSTAGINE-D [Concomitant]
     Dosage: 40 MG
     Route: 048
  10. PRIMPERAN [Concomitant]
     Indication: METASTATIC RENAL CELL CARCINOMA
     Dosage: 10 MG
     Route: 048
     Dates: start: 20110506

REACTIONS (5)
  - Interstitial lung disease [Recovering/Resolving]
  - Dyspnoea [Recovering/Resolving]
  - C-reactive protein increased [Unknown]
  - Haemoglobin decreased [Unknown]
  - Gamma-glutamyltransferase increased [Unknown]
